FAERS Safety Report 7562612-6 (Version None)
Quarter: 2011Q2

REPORT INFORMATION
  Report Type: 
  Country: None (occurrence: None)
  Receive Date: 20110525
  Receipt Date: 20110406
  Transmission Date: 20111010
  Serious: No
  Sender: FDA-Public Use
  Company Number: 326263

PATIENT
  Age: 71 Year
  Sex: Female

DRUGS (1)
  1. VICTOZA [Suspect]
     Indication: TYPE 2 DIABETES MELLITUS
     Dosage: 0.6 MG, QD, SUBCUTANEOUS ; 1.2 MG, QD ; 0.6 MG, QD
     Dates: start: 20110306

REACTIONS (6)
  - ABDOMINAL DISTENSION [None]
  - BURNING SENSATION [None]
  - FLATULENCE [None]
  - DYSGEUSIA [None]
  - CONSTIPATION [None]
  - DRUG DOSE OMISSION [None]
